FAERS Safety Report 4500337-1 (Version None)
Quarter: 2004Q4

REPORT INFORMATION
  Report Type: 
  Country: None (occurrence: None)
  Receive Date: 20041112
  Receipt Date: 20041110
  Transmission Date: 20050328
  Serious: Yes (Hospitalization)
  Sender: FDA-Public Use
  Company Number: NZ-MERCK-0411NZL00019

PATIENT
  Sex: Female

DRUGS (1)
  1. VIOXX [Suspect]
     Route: 065

REACTIONS (1)
  - CARDIAC DISORDER [None]
